FAERS Safety Report 17854219 (Version 1)
Quarter: 2020Q2

REPORT INFORMATION
  Report Type: Spontaneous
  Country: US (occurrence: US)
  Receive Date: 20200603
  Receipt Date: 20200603
  Transmission Date: 20200714
  Serious: Yes (Life-Threatening, Hospitalization, Other)
  Sender: FDA-Public Use
  Company Number: US-ACCORD-183789

PATIENT
  Age: 8 Year
  Sex: Male

DRUGS (3)
  1. MYCOPHENOLIC ACID. [Suspect]
     Active Substance: MYCOPHENOLIC ACID
     Indication: IMMUNOSUPPRESSANT DRUG THERAPY
  2. CICLOSPORIN [Suspect]
     Active Substance: CYCLOSPORINE
     Indication: IMMUNOSUPPRESSANT DRUG THERAPY
  3. PREDNISONE. [Suspect]
     Active Substance: PREDNISONE
     Indication: IMMUNOSUPPRESSANT DRUG THERAPY

REACTIONS (11)
  - Hyponatraemia [Unknown]
  - Cat scratch disease [Unknown]
  - Pleural effusion [Unknown]
  - Lymphadenopathy [Unknown]
  - Ascites [Unknown]
  - Normocytic anaemia [Recovering/Resolving]
  - Bone marrow failure [Recovering/Resolving]
  - Hyperkalaemia [Unknown]
  - Bacillary angiomatosis [Unknown]
  - Hypoalbuminaemia [Unknown]
  - Post transplant lymphoproliferative disorder [Unknown]
